FAERS Safety Report 9247700 (Version 1)
Quarter: 2013Q2

REPORT INFORMATION
  Report Type: Spontaneous
  Country: ES (occurrence: ES)
  Receive Date: 20130423
  Receipt Date: 20130423
  Transmission Date: 20140414
  Serious: Yes (Other)
  Sender: FDA-Public Use
  Company Number: ES-ELI_LILLY_AND_COMPANY-ES201304004028

PATIENT
  Age: 62 Year
  Sex: Male

DRUGS (1)
  1. CIALIS [Suspect]
     Dosage: 5 MG, QD

REACTIONS (2)
  - Vitreous detachment [Unknown]
  - Tinnitus [Unknown]
